FAERS Safety Report 7573356-9 (Version None)
Quarter: 2011Q2

REPORT INFORMATION
  Report Type: 
  Country: None (occurrence: None)
  Receive Date: 20110627
  Receipt Date: 20110620
  Transmission Date: 20111010
  Serious: Yes (Death, Life-Threatening, Hospitalization)
  Sender: FDA-Public Use
  Company Number: PHHY2011JP22210

PATIENT
  Sex: Male

DRUGS (11)
  1. ZOMETA [Suspect]
     Indication: METASTASES TO BONE
     Dosage: UNK
     Route: 041
     Dates: start: 20090225, end: 20110208
  2. UFT [Concomitant]
     Dosage: 450 MG, UNK
  3. TICLOPIDINE HCL [Concomitant]
     Dosage: 200 MG, UNK
  4. DUROTEP JANSSEN [Concomitant]
     Dosage: UNK
     Route: 062
     Dates: end: 20110228
  5. ISOSORBIDE DINITRATE [Concomitant]
     Dosage: 40 MG, UNK
  6. BICALUTAMIDE [Concomitant]
     Dosage: 80 MG, UNK
     Route: 048
  7. UBRETID [Concomitant]
     Dosage: 5 MG, UNK
     Route: 048
  8. ESTRACYT [Concomitant]
     Dosage: 626.8 MG, UNK
     Route: 048
  9. URIEF [Concomitant]
     Dosage: 8 MG, UNK
  10. PREDNISOLONE [Concomitant]
     Dosage: 7.5 MG, UNK
  11. DUROTEP JANSSEN [Concomitant]
     Route: 062

REACTIONS (23)
  - TENDERNESS [None]
  - PAIN IN JAW [None]
  - MUSCULOSKELETAL PAIN [None]
  - PERIODONTAL DISEASE [None]
  - BONE DISORDER [None]
  - BONE SWELLING [None]
  - GENERAL PHYSICAL HEALTH DETERIORATION [None]
  - PAIN [None]
  - PULPITIS DENTAL [None]
  - PYREXIA [None]
  - GINGIVAL ERYTHEMA [None]
  - GINGIVITIS [None]
  - DENTAL FISTULA [None]
  - RED BLOOD CELL COUNT DECREASED [None]
  - BLOOD CREATININE DECREASED [None]
  - OXYGEN SATURATION DECREASED [None]
  - FEELING HOT [None]
  - NEOPLASM PROGRESSION [None]
  - NEOPLASM MALIGNANT [None]
  - OSTEONECROSIS OF JAW [None]
  - BACTERIAL INFECTION [None]
  - PURULENCE [None]
  - HAEMOGLOBIN DECREASED [None]
